FAERS Safety Report 19255702 (Version 1)
Quarter: 2021Q2

REPORT INFORMATION
  Report Type: Spontaneous
  Country: GB (occurrence: GB)
  Receive Date: 20210514
  Receipt Date: 20210514
  Transmission Date: 20210717
  Serious: Yes (Hospitalization, Other)
  Sender: FDA-Public Use
  Company Number: GB-AUROBINDO-AUR-APL-2021-019522

PATIENT
  Age: 87 Year
  Sex: Female
  Weight: 59 kg

DRUGS (21)
  1. BUTEC [Concomitant]
     Active Substance: BUPRENORPHINE
     Indication: ILL-DEFINED DISORDER
     Dosage: UNK (APPLY ONE WEEKLY)
     Route: 065
     Dates: start: 20210406
  2. LAXIDO [Concomitant]
     Active Substance: POLYETHYLENE GLYCOL 3350\POTASSIUM CHLORIDE\SODIUM BICARBONATE\SODIUM CHLORIDE
     Indication: ILL-DEFINED DISORDER
     Dosage: UNK, ONCE A DAY
     Route: 065
     Dates: start: 20210423
  3. CO?AMOXICLAV [Suspect]
     Active Substance: AMOXICILLIN\CLAVULANATE POTASSIUM
     Indication: PRODUCT USED FOR UNKNOWN INDICATION
     Dosage: UNK
     Route: 065
     Dates: start: 20210427
  4. APIXABAN [Concomitant]
     Active Substance: APIXABAN
     Indication: ILL-DEFINED DISORDER
     Dosage: UNK, TWO TIMES A DAY (TAKE ONE)
     Route: 065
     Dates: start: 20200827
  5. BECONASE AQ [Concomitant]
     Active Substance: BECLOMETHASONE DIPROPIONATE MONOHYDRATE
     Indication: ILL-DEFINED DISORDER
     Dosage: UNK, TWO TIMES A DAY (TWO PUFFS)
     Route: 065
     Dates: start: 20200827
  6. BISOPROLOL [Concomitant]
     Active Substance: BISOPROLOL
     Indication: ILL-DEFINED DISORDER
     Dosage: UNK, ONCE A DAY (TAKE ONE)
     Route: 065
     Dates: start: 20200827
  7. RAMIPRIL. [Concomitant]
     Active Substance: RAMIPRIL
     Indication: ILL-DEFINED DISORDER
     Dosage: UNK, ONCE A DAY (TAKE ONE)
     Route: 065
     Dates: start: 20200827
  8. ZAPAIN [Concomitant]
     Active Substance: ACETAMINOPHEN\CODEINE PHOSPHATE
     Indication: ILL-DEFINED DISORDER
     Dosage: UNK (TAKE 2 UP TO 4 TIMES/DAY)
     Route: 065
     Dates: start: 20200827, end: 20210315
  9. BUPRENORPHINE. [Concomitant]
     Active Substance: BUPRENORPHINE
     Indication: ILL-DEFINED DISORDER
     Dosage: UNK (APPLY ONE WEEKLY
     Route: 065
     Dates: start: 20210406
  10. FUROSEMIDE. [Concomitant]
     Active Substance: FUROSEMIDE
     Indication: ILL-DEFINED DISORDER
     Dosage: UNK (TAKE ONE EACH MORNING)
     Route: 065
     Dates: start: 20200827
  11. IBUPROFEN. [Concomitant]
     Active Substance: IBUPROFEN
     Indication: ILL-DEFINED DISORDER
     Dosage: UNK (APPLY 3?4 TIMES/DAY)
     Route: 065
     Dates: start: 20210310, end: 20210317
  12. PREGABALIN. [Concomitant]
     Active Substance: PREGABALIN
     Indication: ILL-DEFINED DISORDER
     Dosage: UNK, TWO TIMES A DAY (1 TO BE TAKEN)
     Route: 065
     Dates: start: 20200827
  13. GALANTAMINE. [Concomitant]
     Active Substance: GALANTAMINE
     Indication: ILL-DEFINED DISORDER
     Dosage: UNK, ONCE A DAY (TAKE ONE)
     Route: 065
     Dates: start: 20210426
  14. MONOMIL XL [Concomitant]
     Active Substance: ISOSORBIDE MONONITRATE
     Indication: ILL-DEFINED DISORDER
     Dosage: UNK (TAKE ONE EACH MORNING)
     Route: 065
     Dates: start: 20200827
  15. GLYCERYL TRINITRATE [Concomitant]
     Active Substance: NITROGLYCERIN
     Indication: ILL-DEFINED DISORDER
     Dosage: UNK (ONE PUFF AS NEEDED)
     Route: 065
     Dates: start: 20210216, end: 20210217
  16. LANSOPRAZOLE. [Concomitant]
     Active Substance: LANSOPRAZOLE
     Indication: ILL-DEFINED DISORDER
     Dosage: UNK, ONCE A DAY (TAKE ONE ONCE)
     Route: 065
     Dates: start: 20200827
  17. QUININE [Concomitant]
     Active Substance: QUININE
     Indication: ILL-DEFINED DISORDER
     Dosage: UNK (ONE AT NIGHT)
     Route: 065
     Dates: start: 20200827
  18. TRIMETHOPRIM. [Concomitant]
     Active Substance: TRIMETHOPRIM
     Indication: ILL-DEFINED DISORDER
     Dosage: UNK, TWO TIMES A DAY (ONE)
     Route: 065
     Dates: start: 20210310, end: 20210317
  19. ATORVASTATIN [Concomitant]
     Active Substance: ATORVASTATIN
     Indication: ILL-DEFINED DISORDER
     Dosage: UNK (TAKE ONE NIGHTLY)
     Route: 065
     Dates: start: 20200827
  20. MIRABEGRON [Concomitant]
     Active Substance: MIRABEGRON
     Indication: ILL-DEFINED DISORDER
     Dosage: UNK, ONCE A DAY (TAKE ONE)
     Route: 065
     Dates: start: 20200827
  21. NITROFURANTOIN. [Concomitant]
     Active Substance: NITROFURANTOIN
     Indication: ILL-DEFINED DISORDER
     Dosage: NK, TWO TIMES A DAY (TAKE ONE)
     Route: 065
     Dates: start: 20210315, end: 20210322

REACTIONS (1)
  - Malaise [Recovered/Resolved]

NARRATIVE: CASE EVENT DATE: 20210427
